FAERS Safety Report 8539609-2 (Version None)
Quarter: 2012Q3

REPORT INFORMATION
  Report Type: 
  Country: None (occurrence: None)
  Receive Date: 20120726
  Receipt Date: 20120719
  Transmission Date: 20120928
  Serious: Yes (Hospitalization)
  Sender: FDA-Public Use
  Company Number: FR-PFIZER INC-2012174379

PATIENT
  Age: 64 Year
  Sex: Male

DRUGS (8)
  1. FOLIC ACID [Concomitant]
     Dosage: 5 MG, UNK
  2. NEXIUM [Suspect]
     Dosage: 40 MG, 1X/DAY
     Route: 048
     Dates: start: 20120511, end: 20120524
  3. TOPLEXIL [Suspect]
     Dosage: UNK
     Route: 048
     Dates: start: 20120512, end: 20120517
  4. KARDEGIC 160 [Concomitant]
  5. PARACETAMOL [Concomitant]
     Dosage: UNK, AS NEEDED
  6. ATARAX [Suspect]
     Dosage: UNK
     Route: 048
     Dates: start: 20120512, end: 20120516
  7. FLUCONAZOLE [Suspect]
     Dosage: 200 MG, UNK
     Route: 048
     Dates: start: 20120510, end: 20120524
  8. LYRICA [Concomitant]

REACTIONS (2)
  - AGITATION [None]
  - HALLUCINATION, VISUAL [None]
